FAERS Safety Report 4922197-7 (Version None)
Quarter: 2006Q1

REPORT INFORMATION
  Report Type: 
  Country: None (occurrence: None)
  Receive Date: 20060224
  Receipt Date: 20051011
  Transmission Date: 20060701
  Serious: Yes (Hospitalization)
  Sender: FDA-Public Use
  Company Number: US-MERCK-0510USA06657

PATIENT
  Age: 66 Year
  Sex: Male
  Weight: 100 kg

DRUGS (7)
  1. VIOXX [Suspect]
     Indication: ARTHRITIS
     Route: 048
     Dates: start: 20000101, end: 20040101
  2. CLARINEX [Concomitant]
     Route: 065
  3. SYNTHROID [Concomitant]
     Route: 065
  4. HYDROCHLOROTHIAZIDE AND TRIAMTERENE [Concomitant]
     Route: 065
  5. FLOMAX [Concomitant]
     Route: 065
  6. FLEXERIL [Concomitant]
     Route: 048
  7. ADDERALL TABLETS [Concomitant]
     Route: 065

REACTIONS (3)
  - BLOOD CHOLESTEROL INCREASED [None]
  - CEREBROVASCULAR ACCIDENT [None]
  - THROMBOSIS [None]
